FAERS Safety Report 8094396 (Version 4)
Quarter: 2013Q1

REPORT INFORMATION
  Report Type: Report from Study
  Country: DE (occurrence: DE)
  Receive Date: 20110817
  Receipt Date: 20130301
  Transmission Date: 20140127
  Serious: Yes (Other)
  Sender: FDA-Public Use
  Company Number: PHHO2011DE13576

PATIENT
  Sex: Female
  Weight: 65 kg

DRUGS (2)
  1. EVEROLIMUS [Suspect]
     Indication: CHEMOTHERAPY MULTIPLE AGENTS SYSTEMIC
     Dosage: 10 MG, BID
     Route: 048
     Dates: start: 20070404, end: 20110621
  2. VIANI [Concomitant]
     Indication: CHRONIC OBSTRUCTIVE PULMONARY DISEASE
     Dosage: ONE PUFF/ DAY
     Dates: start: 2010, end: 20110622

REACTIONS (1)
  - Pneumonitis [Recovering/Resolving]
